FAERS Safety Report 6124378-6 (Version None)
Quarter: 2009Q1

REPORT INFORMATION
  Report Type: 
  Country: None (occurrence: None)
  Receive Date: 20090319
  Receipt Date: 20090310
  Transmission Date: 20090719
  Serious: Yes (Disabling)
  Sender: FDA-Public Use
  Company Number: US-PFIZER INC-2007029751

PATIENT
  Sex: Female
  Weight: 76.7 kg

DRUGS (8)
  1. EXEMESTANE [Suspect]
     Indication: BREAST CANCER
     Dosage: 25 MG, 1X/DAY
     Route: 048
     Dates: start: 20051004, end: 20070413
  2. AVAPRO [Concomitant]
     Dosage: QD
     Route: 048
     Dates: start: 19740101
  3. ASPIRIN [Concomitant]
     Dosage: QD
     Route: 048
     Dates: start: 20030101
  4. CRESTOR [Concomitant]
     Dosage: QD
     Route: 048
     Dates: start: 20040101
  5. CALCIUM [Concomitant]
     Dosage: TID
     Route: 048
     Dates: start: 20050101
  6. VITACAL [Concomitant]
     Dosage: QD
     Route: 048
     Dates: start: 20050101
  7. CARDIZEM [Concomitant]
     Route: 048
     Dates: start: 20030101
  8. TOPROL-XL [Concomitant]
     Route: 048
     Dates: start: 20061001

REACTIONS (2)
  - BLINDNESS [None]
  - RETINAL VEIN OCCLUSION [None]
